FAERS Safety Report 5598156-0 (Version None)
Quarter: 2007Q4

REPORT INFORMATION
  Report Type: 
  Country: None (occurrence: None)
  Receive Date: 20071226
  Receipt Date: 20070910
  Transmission Date: 20080405
  Serious: No
  Sender: FDA-Public Use
  Company Number: 2007PV033420

PATIENT
  Age: 59 Year
  Sex: Male
  Weight: 102.0593 kg

DRUGS (4)
  1. SYMLIN [Suspect]
     Indication: TYPE 2 DIABETES MELLITUS
     Dosage: SC
     Route: 058
  2. LANTUS [Concomitant]
  3. APIDRA [Concomitant]
  4. GLUCOPHAGE [Concomitant]

REACTIONS (1)
  - DRUG INEFFECTIVE [None]
